FAERS Safety Report 9357471 (Version 1)
Quarter: 2013Q2

REPORT INFORMATION
  Report Type: Report from Study
  Country: CA (occurrence: CA)
  Receive Date: 20130620
  Receipt Date: 20130620
  Transmission Date: 20140414
  Serious: No
  Sender: FDA-Public Use
  Company Number: PHHY2013CA062509

PATIENT
  Sex: Female

DRUGS (4)
  1. TASIGNA [Suspect]
     Indication: CHRONIC MYELOID LEUKAEMIA
     Dosage: 400 MG, BID
     Route: 048
     Dates: start: 201004
  2. GABAPENTIN [Concomitant]
  3. HYDROMORPH CONTIN [Concomitant]
  4. NORTRIPTYLINE [Concomitant]

REACTIONS (2)
  - Gastric pH decreased [Unknown]
  - Abdominal discomfort [Unknown]
